FAERS Safety Report 5010840-6 (Version None)
Quarter: 2006Q2

REPORT INFORMATION
  Report Type: 
  Country: None (occurrence: None)
  Receive Date: 20060525
  Receipt Date: 20060522
  Transmission Date: 20061013
  Serious: Yes (Death, Congenital Anomaly)
  Sender: FDA-Public Use
  Company Number: US-GLAXOSMITHKLINE-A0606554A

PATIENT

DRUGS (3)
  1. TRIZIVIR [Suspect]
     Dosage: 1TAB TWICE PER DAY
     Dates: start: 20060131
  2. KALETRA [Concomitant]
     Dosage: 2U TWICE PER DAY
     Route: 048
     Dates: start: 20060131
  3. BACTRIM [Concomitant]
     Dosage: 1U THREE TIMES PER WEEK
     Route: 048
     Dates: start: 20060131

REACTIONS (4)
  - DEATH [None]
  - DRUG EXPOSURE DURING PREGNANCY [None]
  - PREMATURE LABOUR [None]
  - TRISOMY 18 [None]
